FAERS Safety Report 4548117-5 (Version None)
Quarter: 2005Q1

REPORT INFORMATION
  Report Type: 
  Country: None (occurrence: None)
  Receive Date: 20050104
  Receipt Date: 20050104
  Transmission Date: 20050727
  Serious: Yes (Life-Threatening, Hospitalization)
  Sender: FDA-Public Use
  Company Number: None

PATIENT
  Sex: Male
  Weight: 66.8 kg

DRUGS (3)
  1. CARBOPLATIN [Suspect]
     Indication: NON-SMALL CELL LUNG CANCER
     Dosage: 105 MG ONCE INTRAVENOUS
     Route: 042
     Dates: start: 20041227, end: 20041227
  2. DOCETAXEL 60MG/M2 [Suspect]
     Indication: NON-SMALL CELL LUNG CANCER
     Dosage: 105 MG ONCE INTRAVENOUS
     Route: 042
     Dates: start: 20041227, end: 20041227
  3. GLEEVEC [Concomitant]

REACTIONS (2)
  - NEUTROPHIL COUNT DECREASED [None]
  - PYREXIA [None]
